FAERS Safety Report 7215174-7 (Version None)
Quarter: 2011Q1

REPORT INFORMATION
  Report Type: 
  Country: None (occurrence: None)
  Receive Date: 20110107
  Receipt Date: 20101029
  Transmission Date: 20110831
  Serious: No
  Sender: FDA-Public Use
  Company Number: A0885025A

PATIENT
  Age: 76 Year
  Sex: Female

DRUGS (8)
  1. VITAMIN TAB [Concomitant]
  2. LOVAZA [Suspect]
     Dosage: 2G TWICE PER DAY
     Route: 048
     Dates: start: 20090830, end: 20100910
  3. ACID REFLUX MED. [Concomitant]
  4. ADVAIR [Concomitant]
  5. THYROID MEDICATION [Concomitant]
  6. COQ10 [Concomitant]
  7. ASPIRIN [Concomitant]
  8. SPIRIVA [Concomitant]

REACTIONS (2)
  - DRUG INEFFECTIVE [None]
  - BLOOD CHOLESTEROL INCREASED [None]
